FAERS Safety Report 4661806-7 (Version None)
Quarter: 2005Q2

REPORT INFORMATION
  Report Type: 
  Country: None (occurrence: None)
  Receive Date: 20050512
  Receipt Date: 20050512
  Transmission Date: 20051028
  Serious: Yes (Life-Threatening, Hospitalization)
  Sender: FDA-Public Use
  Company Number: None

PATIENT
  Age: 62 Year
  Sex: Male
  Weight: 73.4827 kg

DRUGS (1)
  1. OMNIPAQUE 300 [Suspect]
     Indication: SCAN WITH CONTRAST

REACTIONS (2)
  - CHEST PAIN [None]
  - DYSPNOEA [None]
